FAERS Safety Report 14376763 (Version 2)
Quarter: 2018Q1

REPORT INFORMATION
  Report Type: Spontaneous
  Country: DE (occurrence: DE)
  Receive Date: 20180111
  Receipt Date: 20180320
  Transmission Date: 20180509
  Serious: Yes (Hospitalization, Other)
  Sender: FDA-Public Use
  Company Number: DE-PFIZER INC-2018010503

PATIENT
  Age: 69 Year
  Sex: Female

DRUGS (16)
  1. SERTRALINE HCL [Suspect]
     Active Substance: SERTRALINE HYDROCHLORIDE
     Dosage: 25 MG, DAILY (QD)
     Route: 048
     Dates: start: 20130912, end: 20130918
  2. TRIAMTERENE. [Suspect]
     Active Substance: TRIAMTERENE
     Dosage: 50 MG, DAILY (QD)
     Route: 048
     Dates: end: 20130815
  3. CARBAMAZEPINE. [Concomitant]
     Active Substance: CARBAMAZEPINE
     Dosage: UNK
     Route: 065
  4. ARIPIPRAZOLE. [Suspect]
     Active Substance: ARIPIPRAZOLE
     Dosage: 10 MG, DAILY (QD)
     Route: 048
     Dates: start: 20130401, end: 20130829
  5. LEVOTHYROXIN [Concomitant]
     Active Substance: LEVOTHYROXINE
     Dosage: UNK
     Route: 065
  6. MIRTAZAPINE. [Concomitant]
     Active Substance: MIRTAZAPINE
     Dosage: UNK
     Route: 065
  7. SERTRALINE HCL [Suspect]
     Active Substance: SERTRALINE HYDROCHLORIDE
     Dosage: 50 MG, DAILY (QD)
     Route: 048
     Dates: start: 20130716, end: 20130911
  8. DOXEPIN [Suspect]
     Active Substance: DOXEPIN
     Dosage: 100 MG, DAILY (QD)
     Route: 048
     Dates: end: 20130827
  9. SERTRALINE HCL [Suspect]
     Active Substance: SERTRALINE HYDROCHLORIDE
     Dosage: 25 MG, DAILY (QD)
     Route: 048
     Dates: start: 20130401, end: 20130913
  10. DOXEPIN [Suspect]
     Active Substance: DOXEPIN
     Dosage: 50 MG, DAILY (QD)
     Route: 048
     Dates: start: 20130822, end: 20130827
  11. QUETIAPINE. [Concomitant]
     Active Substance: QUETIAPINE
     Dosage: UNK
     Route: 065
  12. QUILONIUM R [Concomitant]
     Active Substance: LITHIUM CARBONATE
     Dosage: UNK
     Route: 065
  13. LAMOTRIGINE. [Concomitant]
     Active Substance: LAMOTRIGINE
     Dosage: UNK
     Route: 065
  14. HCT [Suspect]
     Active Substance: HYDROCHLOROTHIAZIDE
     Dosage: 25 MG, DAILY (QD)
     Route: 048
     Dates: end: 20130815
  15. LORAZEPAM. [Concomitant]
     Active Substance: LORAZEPAM
     Dosage: UNK
     Route: 065
  16. ARIPIPRAZOLE. [Suspect]
     Active Substance: ARIPIPRAZOLE
     Dosage: 5 MG,DAILY(QD)
     Route: 048
     Dates: start: 20130816, end: 20130829

REACTIONS (4)
  - Myoclonus [Recovered/Resolved]
  - Restlessness [Unknown]
  - Photosensitivity reaction [Recovered/Resolved]
  - Drug ineffective [Unknown]

NARRATIVE: CASE EVENT DATE: 20130720
